FAERS Safety Report 15918191 (Version 1)
Quarter: 2019Q1

REPORT INFORMATION
  Report Type: Spontaneous
  Country: DK (occurrence: DK)
  Receive Date: 20190205
  Receipt Date: 20190205
  Transmission Date: 20190417
  Serious: Yes (Other)
  Sender: FDA-Public Use
  Company Number: DK-ROCHE-2256876

PATIENT
  Age: 44 Year
  Sex: Male

DRUGS (2)
  1. METADON [Concomitant]
     Active Substance: METHADONE HYDROCHLORIDE
     Route: 048
  2. RIVOTRIL [Suspect]
     Active Substance: CLONAZEPAM
     Indication: SEDATION
     Route: 048
     Dates: start: 2009

REACTIONS (3)
  - Dependence [Recovering/Resolving]
  - Withdrawal syndrome [Recovering/Resolving]
  - Malaise [Recovering/Resolving]

NARRATIVE: CASE EVENT DATE: 20181201
